FAERS Safety Report 8571508 (Version 5)
Quarter: 2014Q1

REPORT INFORMATION
  Report Type: Spontaneous
  Country: US (occurrence: US)
  Receive Date: 20120521
  Receipt Date: 20140131
  Transmission Date: 20141002
  Serious: Yes (Death, Hospitalization, Other)
  Sender: FDA-Public Use
  Company Number: US-B.I. PHARMACEUTICALS,INC./RIDGEFIELD-2012-BP-11039BP

PATIENT
  Sex: Male
  Weight: 138.35 kg

DRUGS (8)
  1. PRADAXA [Suspect]
     Dosage: 300 MG
     Dates: start: 20110204, end: 20110712
  2. METOPROLOL ER [Concomitant]
     Dosage: 200 MG
     Dates: start: 200102, end: 201108
  3. CARDIZEM [Concomitant]
     Dosage: 180 MG
     Dates: start: 200511, end: 201108
  4. QUINAPRIL [Concomitant]
     Dosage: 20 MG
     Dates: start: 200502, end: 201108
  5. VYTORIN [Concomitant]
  6. ASA [Concomitant]
  7. LASIX [Concomitant]
     Dosage: 40 MG
  8. POTASSIUM CHLORIDE [Concomitant]
     Dosage: 20 MEQ

REACTIONS (3)
  - Gastrointestinal perforation [Fatal]
  - Sepsis [Fatal]
  - Gastrointestinal haemorrhage [Unknown]
